FAERS Safety Report 4703681-8 (Version None)
Quarter: 2005Q2

REPORT INFORMATION
  Report Type: 
  Country: None (occurrence: None)
  Receive Date: 20050628
  Receipt Date: 20050615
  Transmission Date: 20051028
  Serious: Yes (Other)
  Sender: FDA-Public Use
  Company Number: US_0506118563

PATIENT
  Age: 46 Year
  Sex: Male

DRUGS (5)
  1. ZYPREXA [Suspect]
     Indication: SCHIZOAFFECTIVE DISORDER
     Dates: start: 20040101
  2. SERTRALINE [Concomitant]
  3. ALPRAZOLAM [Concomitant]
  4. TRAZODONE (TRAZODONE) [Concomitant]
  5. SILDENAFIL CITRATE [Concomitant]

REACTIONS (15)
  - AMNESIA [None]
  - ANXIETY [None]
  - ASTHENIA [None]
  - BLOOD GLUCOSE INCREASED [None]
  - DELUSION [None]
  - DEPRESSION [None]
  - FATIGUE [None]
  - GLYCOSYLATED HAEMOGLOBIN INCREASED [None]
  - HALLUCINATION, AUDITORY [None]
  - LOSS OF CONSCIOUSNESS [None]
  - MUSCLE RIGIDITY [None]
  - OBSESSIVE-COMPULSIVE DISORDER [None]
  - PARANOIA [None]
  - PHOBIA [None]
  - WHITE BLOOD CELL COUNT INCREASED [None]
